FAERS Safety Report 5743979-8 (Version None)
Quarter: 2008Q2

REPORT INFORMATION
  Report Type: 
  Country: None (occurrence: None)
  Receive Date: 20080516
  Receipt Date: 20080516
  Transmission Date: 20081010
  Serious: Yes (Death)
  Sender: FDA-Public Use
  Company Number: None

PATIENT
  Age: 64 Year
  Sex: Male
  Weight: 88.4514 kg

DRUGS (2)
  1. DIGITEK 0.25 [Suspect]
     Indication: CARDIAC DISORDER
     Dosage: 1 TAB BY MOUTH EVERY DAY
     Dates: start: 20050106, end: 20071228
  2. DIGITEK 0.25 [Suspect]
     Indication: LUNG DISORDER
     Dosage: 1 TAB BY MOUTH EVERY DAY
     Dates: start: 20050106, end: 20071228

REACTIONS (3)
  - DIZZINESS [None]
  - HYPOTENSION [None]
  - PHARMACEUTICAL PRODUCT COMPLAINT [None]
